FAERS Safety Report 19155291 (Version 1)
Quarter: 2021Q2

REPORT INFORMATION
  Report Type: Spontaneous
  Country: CA (occurrence: CA)
  Receive Date: 20210419
  Receipt Date: 20210419
  Transmission Date: 20210717
  Serious: Yes (Life-Threatening, Disabling, Other)
  Sender: FDA-Public Use
  Company Number: CA-BAUSCH-BL-2021-012273

PATIENT
  Age: 55 Year
  Sex: Female
  Weight: 58 kg

DRUGS (2)
  1. ARESTIN [Suspect]
     Active Substance: MINOCYCLINE HYDROCHLORIDE
  2. ARESTIN [Suspect]
     Active Substance: MINOCYCLINE HYDROCHLORIDE
     Indication: TOOTH ABSCESS
     Dosage: ONCE
     Route: 004

REACTIONS (17)
  - Feeling abnormal [Not Recovered/Not Resolved]
  - Paranasal sinus inflammation [Not Recovered/Not Resolved]
  - Mouth swelling [Not Recovered/Not Resolved]
  - Impaired work ability [Not Recovered/Not Resolved]
  - Lipodystrophy acquired [Not Recovered/Not Resolved]
  - Skin mass [Not Recovered/Not Resolved]
  - Bone loss [Not Recovered/Not Resolved]
  - Osteomyelitis [Not Recovered/Not Resolved]
  - Deformity [Not Recovered/Not Resolved]
  - Erythema [Not Recovered/Not Resolved]
  - Dehiscence [Not Recovered/Not Resolved]
  - Head deformity [Not Recovered/Not Resolved]
  - Malaise [Not Recovered/Not Resolved]
  - Mastication disorder [Not Recovered/Not Resolved]
  - Immunoglobulin G4 related disease [Not Recovered/Not Resolved]
  - Facial pain [Not Recovered/Not Resolved]
  - Swelling face [Not Recovered/Not Resolved]
